FAERS Safety Report 6178089-1 (Version None)
Quarter: 2009Q2

REPORT INFORMATION
  Report Type: 
  Country: None (occurrence: None)
  Receive Date: 20090504
  Receipt Date: 20090422
  Transmission Date: 20091009
  Serious: Yes (Life-Threatening, Hospitalization, Other)
  Sender: FDA-Public Use
  Company Number: EC-PFIZER INC-2007105399

PATIENT

DRUGS (3)
  1. LYRICA [Suspect]
     Indication: PROSTATITIS
     Route: 048
     Dates: start: 20071210
  2. ARCOXIA [Interacting]
     Indication: PROSTATITIS
  3. MOBIC [Concomitant]

REACTIONS (3)
  - CEREBROVASCULAR ACCIDENT [None]
  - DRUG INTERACTION [None]
  - HEMIPLEGIA [None]
